FAERS Safety Report 19495965 (Version 1)
Quarter: 2021Q3

REPORT INFORMATION
  Report Type: Spontaneous
  Country: NL (occurrence: NL)
  Receive Date: 20210706
  Receipt Date: 20210706
  Transmission Date: 20211014
  Serious: Yes (Hospitalization)
  Sender: FDA-Public Use
  Company Number: NL-TEVA-2021-NL-1930187

PATIENT
  Age: 73 Year
  Sex: Female
  Weight: 50.4 kg

DRUGS (8)
  1. ATORVASTATINE TABLET 40MG / BRAND NAME NOT SPECIFIED [Interacting]
     Active Substance: ATORVASTATIN
     Indication: ACUTE MYOCARDIAL INFARCTION
     Dosage: 40 MG, 2DD 40 MG, THERAPY END DATE: ASKU
     Route: 065
     Dates: start: 202103
  2. ACETYLSALICYLZUUR TABLET  80MG / BRAND NAME NOT SPECIFIED [Concomitant]
     Active Substance: ASPIRIN
     Dosage: 80 MG , THERAPY START AND END DATE: ASKU
  3. METOPROLOL TABLET MGA  50MG (SUCCINAAT) / BRAND NAME NOT SPECIFIED [Concomitant]
     Active Substance: METOPROLOL SUCCINATE
     Dosage: 50 MG, THERAPY START AND END DATE: ASKU
  4. PERINDOPRIL TABLET 2MG (ERBUMINE) / BRAND NAME NOT SPECIFIED [Concomitant]
     Dosage: 2 MG, THERAPY START AND END DATE: ASKU
  5. METRONIDAZOL TABLET 500MG / BRAND NAME NOT SPECIFIED [Suspect]
     Active Substance: METRONIDAZOLE
     Indication: DIENTAMOEBA INFECTION
     Dosage: 1500 MILLIGRAM DAILY;
     Route: 065
     Dates: start: 20210604, end: 20210607
  6. ATORVASTATINE TABLET 40MG / BRAND NAME NOT SPECIFIED [Interacting]
     Active Substance: ATORVASTATIN
     Dosage: WHICH WAS HALVED BY THE GP ON 10?6?21, 20 MG, THERAPY END DATE: ASKU
     Route: 065
     Dates: start: 20210610
  7. NITROGLYCERINE SPRAY SUBLING. 0,4MG/DO / NITROLINGUAL OROMUCOSALE SPRA [Concomitant]
     Dosage: SPRAY, 0.4 MILLIGRAMS PER DOSE, OROMUCOSAL SPRAY, THERAPY START AND END DATE: ASKU
  8. PANTOPRAZOL TABLET MSR 40MG / BRAND NAME NOT SPECIFIED [Concomitant]
     Active Substance: PANTOPRAZOLE
     Dosage: 40 MG, THERAPY START AND END DATE: ASKU

REACTIONS (3)
  - Acute kidney injury [Recovering/Resolving]
  - Rhabdomyolysis [Recovering/Resolving]
  - Drug interaction [Unknown]

NARRATIVE: CASE EVENT DATE: 20210605
